FAERS Safety Report 13441246 (Version 5)
Quarter: 2018Q4

REPORT INFORMATION
  Report Type: Spontaneous
  Country: JP (occurrence: JP)
  Receive Date: 20170413
  Receipt Date: 20181114
  Transmission Date: 20190204
  Serious: Yes (Other)
  Sender: FDA-Public Use
  Company Number: JP-BAUSCH-BL-2017-009666

PATIENT
  Age: 66 Year
  Sex: Male

DRUGS (4)
  1. BORTEZOMIB. [Suspect]
     Active Substance: BORTEZOMIB
     Indication: PLASMA CELL MYELOMA
     Dosage: 3 CYCLICAL; ON DAYS 1, 4, 8 AND 11 ; CYCLICAL
     Route: 058
     Dates: start: 201601
  2. DEXAMETHASONE. [Suspect]
     Active Substance: DEXAMETHASONE
     Indication: PLASMA CELL MYELOMA
     Dosage: 20 MG/DAY ON DAYS 1, 2, 4, 5, 8, 9, 11 AND 12 ; CYCLICAL
     Route: 048
     Dates: start: 201601
  3. PANOBINOSTAT [Suspect]
     Active Substance: PANOBINOSTAT
     Indication: PLASMA CELL MYELOMA
     Dosage: 3-WEEK CYCLES, 20 MG/DAY ON DAYS 1, 3, 5, 8, 10 AND 12 ; CYCLICAL
     Route: 048
     Dates: start: 201601, end: 2016
  4. PANOBINOSTAT [Suspect]
     Active Substance: PANOBINOSTAT
     Dosage: DOSE REDUCED
     Route: 065

REACTIONS (3)
  - Fatigue [Recovered/Resolved]
  - Dehydration [Recovered/Resolved]
  - Nausea [Recovered/Resolved]

NARRATIVE: CASE EVENT DATE: 2016
